FAERS Safety Report 6667626-6 (Version None)
Quarter: 2010Q2

REPORT INFORMATION
  Report Type: 
  Country: None (occurrence: None)
  Receive Date: 20100405
  Receipt Date: 20100322
  Transmission Date: 20101027
  Serious: Yes (Other)
  Sender: FDA-Public Use
  Company Number: IL-AMGEN-US402676

PATIENT
  Age: 60 Year
  Sex: Female

DRUGS (3)
  1. ENBREL [Suspect]
     Indication: PSORIASIS
     Dates: start: 20100201, end: 20100301
  2. ENBREL [Suspect]
     Dates: start: 20100301
  3. METHOTREXATE [Concomitant]
     Dosage: UNKNOWN
     Dates: start: 20091201, end: 20100301

REACTIONS (3)
  - CONDITION AGGRAVATED [None]
  - PERICARDIAL EFFUSION [None]
  - PSORIASIS [None]
